FAERS Safety Report 5144999-7 (Version None)
Quarter: 2006Q4

REPORT INFORMATION
  Report Type: 
  Country: None (occurrence: None)
  Receive Date: 20061107
  Receipt Date: 20061026
  Transmission Date: 20070319
  Serious: Yes (Life-Threatening, Hospitalization, Other)
  Sender: FDA-Public Use
  Company Number: FR-BRISTOL-MYERS SQUIBB COMPANY-13561931

PATIENT
  Age: 57 Year
  Sex: Female

DRUGS (4)
  1. GLUCOPHAGE [Suspect]
     Indication: DIABETES MELLITUS NON-INSULIN-DEPENDENT
     Route: 048
  2. ALDACTONE [Concomitant]
  3. PREVISCAN [Concomitant]
  4. UMULINE ZINC COMPOSE [Concomitant]

REACTIONS (3)
  - ANAEMIA [None]
  - DYSPNOEA [None]
  - LACTIC ACIDOSIS [None]
